FAERS Safety Report 15994768 (Version 2)
Quarter: 2021Q3

REPORT INFORMATION
  Report Type: Spontaneous
  Country: US (occurrence: US)
  Receive Date: 20190222
  Receipt Date: 20210731
  Transmission Date: 20211014
  Serious: Yes (Other)
  Sender: FDA-Public Use
  Company Number: PHEH2019US007537

PATIENT

DRUGS (1)
  1. TASIGNA [Suspect]
     Active Substance: NILOTINIB
     Indication: CHRONIC MYELOID LEUKAEMIA
     Dosage: UNK
     Route: 065
     Dates: start: 2011, end: 2016

REACTIONS (6)
  - Injury [Unknown]
  - Pain [Unknown]
  - Arteriosclerosis [Unknown]
  - Emotional distress [Unknown]
  - Cerebrovascular accident [Unknown]
  - Anxiety [Unknown]

NARRATIVE: CASE EVENT DATE: 201708
